FAERS Safety Report 20042368 (Version 2)
Quarter: 2021Q4

REPORT INFORMATION
  Report Type: Spontaneous
  Country: US (occurrence: US)
  Receive Date: 20211108
  Receipt Date: 20211117
  Transmission Date: 20220303
  Serious: Yes (Disabling, Other)
  Sender: FDA-Public Use
  Company Number: US-ALIMERA SCIENCES LIMITED-US-A16013-21-000224

PATIENT
  Age: 67 Year
  Sex: Male

DRUGS (1)
  1. ILUVIEN [Suspect]
     Active Substance: FLUOCINOLONE ACETONIDE
     Indication: Diabetic retinal oedema
     Dosage: 0.25 MICROGRAM, QD - RIGHT EYE
     Route: 031
     Dates: start: 20170620

REACTIONS (3)
  - Intraocular pressure increased [Recovered/Resolved]
  - Blindness [Not Recovered/Not Resolved]
  - Glaucoma drainage device placement [Recovered/Resolved]

NARRATIVE: CASE EVENT DATE: 20190301
